FAERS Safety Report 6355041-4 (Version None)
Quarter: 2009Q3

REPORT INFORMATION
  Report Type: 
  Country: None (occurrence: None)
  Receive Date: 20090914
  Receipt Date: 20090907
  Transmission Date: 20100115
  Serious: Yes (Congenital Anomaly)
  Sender: FDA-Public Use
  Company Number: B0593016A

PATIENT
  Sex: Female

DRUGS (1)
  1. TRIZIVIR [Suspect]
     Indication: ANTIVIRAL TREATMENT
     Dates: end: 20070101

REACTIONS (1)
  - VENTRICULAR SEPTAL DEFECT [None]
